FAERS Safety Report 16036428 (Version 4)
Quarter: 2021Q2

REPORT INFORMATION
  Report Type: Spontaneous
  Country: US (occurrence: US)
  Receive Date: 20190305
  Receipt Date: 20210621
  Transmission Date: 20210716
  Serious: No
  Sender: FDA-Public Use
  Company Number: US-PFIZER INC-2017200058

PATIENT
  Age: 61 Year
  Sex: Female
  Weight: 74.84 kg

DRUGS (23)
  1. KRILL OIL [Concomitant]
     Active Substance: DIETARY SUPPLEMENT\KRILL OIL
     Indication: VITAMIN B12 ABNORMAL
     Dosage: UNK UNK, DAILY
     Route: 048
  2. LYRICA [Suspect]
     Active Substance: PREGABALIN
     Indication: NEUROPATHY PERIPHERAL
     Dosage: 50 MG, 1X/DAY  [1 CAPSULE AT NIGHT]
     Route: 048
     Dates: start: 2017
  3. MYFORTIC [Concomitant]
     Active Substance: MYCOPHENOLATE SODIUM
     Indication: TRANSPLANT
  4. PREDNISONE. [Concomitant]
     Active Substance: PREDNISONE
     Indication: TRANSPLANT
  5. BACTRIM [Concomitant]
     Active Substance: SULFAMETHOXAZOLE\TRIMETHOPRIM
     Indication: PROPHYLAXIS
     Dosage: 1 DF, UNK
     Dates: end: 20171207
  6. AMLODIPINE [Concomitant]
     Active Substance: AMLODIPINE BESYLATE
     Indication: BLOOD PRESSURE ABNORMAL
     Dosage: 1 DF, UNK
  7. MAGNESIUM OXIDE. [Concomitant]
     Active Substance: MAGNESIUM OXIDE
     Indication: SUPPLEMENTATION THERAPY
     Dosage: UNK
  8. MAGNESIUM CITRATE. [Concomitant]
     Active Substance: MAGNESIUM CITRATE
     Indication: MINERAL SUPPLEMENTATION
     Dosage: 1600 MG, DAILY [TAKES 2 TABLETS IN THE MORNING AND 2 TABLETS AT NIGHT]
     Route: 048
     Dates: start: 201612
  9. ASPIRIN. [Concomitant]
     Active Substance: ASPIRIN
     Indication: ATRIAL FIBRILLATION
     Dosage: 81 MG, DAILY [TAKES 1 TABLET IN THE MORNING ]
     Route: 048
     Dates: start: 2009
  10. AMLODIPINE [Concomitant]
     Active Substance: AMLODIPINE BESYLATE
     Dosage: 5 MG, 1X/DAY [TAKES 1 TABLET IN THE MORNING ]
     Route: 048
     Dates: start: 201612
  11. VITAMIN D [Concomitant]
     Active Substance: VITAMIN D NOS
     Indication: SUPPLEMENTATION THERAPY
     Dosage: 50000 IU, WEEKLY
  12. LYRICA [Suspect]
     Active Substance: PREGABALIN
     Dosage: 50 MG, 1X/DAY (TAKE 1 CAPSULES BY MOUTH EVERY EVENING)
     Route: 048
     Dates: start: 20190116
  13. PROTONIX [Concomitant]
     Active Substance: PANTOPRAZOLE SODIUM
     Indication: PROPHYLAXIS
     Dosage: 1 DF, UNK
  14. LYRICA [Suspect]
     Active Substance: PREGABALIN
     Dosage: 100 MG, DAILY (2 PER DAY)
     Route: 048
  15. LYRICA [Suspect]
     Active Substance: PREGABALIN
     Dosage: 50 MG, TAKE 1 CAPSULE BY MOUTH 2 (TWO) TIMES DAILY AS NEEDED
     Route: 048
  16. PROGRAF [Concomitant]
     Active Substance: TACROLIMUS
     Dosage: UNK [HOLD]
  17. PREDNISONE. [Concomitant]
     Active Substance: PREDNISONE
     Indication: TRANSPLANT REJECTION
     Dosage: 5 MG, DAILY [TAKES 1 TABLET IN THE MORNING ]
     Route: 048
     Dates: start: 201612
  18. TACROLIMUS. [Concomitant]
     Active Substance: TACROLIMUS
     Indication: SUPPLEMENTATION THERAPY
     Dosage: 5 MG, 1X/DAY [1 CAPSULE IN THE MORNING]
     Route: 048
     Dates: start: 201612
  19. LYRICA [Suspect]
     Active Substance: PREGABALIN
     Indication: PAIN IN EXTREMITY
     Dosage: 50 MG, 3X/DAY
     Route: 048
  20. PROGRAF [Concomitant]
     Active Substance: TACROLIMUS
     Indication: TRANSPLANT REJECTION
     Dosage: 2 DF, UNK
  21. MYFORTIC [Concomitant]
     Active Substance: MYCOPHENOLATE SODIUM
     Indication: TRANSPLANT REJECTION
     Dosage: 1440 MG, DAILY [2 TABLETS IN THE MORNING AND 2 TABLETS AT NIGHT ]
     Dates: start: 201612
  22. VALCYTE [Concomitant]
     Active Substance: VALGANCICLOVIR HYDROCHLORIDE
     Indication: PROPHYLAXIS
     Dosage: 1 DF, UNK
     Dates: end: 20170607
  23. VITAMIN D [Concomitant]
     Active Substance: VITAMIN D NOS
     Indication: VITAMIN D DEFICIENCY
     Dosage: 50000 IU, UNK [1 CAPSULE EVERY 15 DAYS]
     Route: 048
     Dates: start: 201612

REACTIONS (2)
  - Drug ineffective [Unknown]
  - Insomnia [Unknown]
